FAERS Safety Report 15596696 (Version 1)
Quarter: 2018Q4

REPORT INFORMATION
  Report Type: Spontaneous
  Country: JP (occurrence: JP)
  Receive Date: 20181107
  Receipt Date: 20181107
  Transmission Date: 20190205
  Serious: Yes (Hospitalization)
  Sender: FDA-Public Use
  Company Number: JP-KYOWAKIRIN-2018CKK009243

PATIENT

DRUGS (1)
  1. KW-0761 [Suspect]
     Active Substance: MOGAMULIZUMAB
     Indication: ADULT T-CELL LYMPHOMA/LEUKAEMIA

REACTIONS (2)
  - Epstein-Barr virus associated lymphoma [Unknown]
  - Rash [Unknown]
